FAERS Safety Report 5093225-6 (Version None)
Quarter: 2006Q3

REPORT INFORMATION
  Report Type: 
  Country: None (occurrence: None)
  Receive Date: 20060828
  Receipt Date: 20060816
  Transmission Date: 20061208
  Serious: Yes (Hospitalization, Other)
  Sender: FDA-Public Use
  Company Number: 227806

PATIENT
  Age: 78 Year
  Sex: Female

DRUGS (14)
  1. AVASTIN [Suspect]
     Indication: PROSTATE CANCER METASTATIC
     Dosage: 400 MG, Q2W
     Dates: start: 20060504
  2. LEUCOVORIN CALCIUM [Concomitant]
  3. FLUOROURACIL [Concomitant]
  4. ETOPOSIDE [Concomitant]
  5. ARANESP [Concomitant]
  6. ALDACTONE [Concomitant]
  7. LASIX [Concomitant]
  8. MACROBID [Concomitant]
  9. HYDROCORTISONE [Concomitant]
  10. ASPIRIN [Concomitant]
  11. POTASSIUM CHLORIDE [Concomitant]
  12. CALCIUM/VITAMIN D (CALCIUM NOS, CHOLECALCIFEROL) [Concomitant]
  13. SENNA (SENNA) [Concomitant]
  14. XELODA [Concomitant]

REACTIONS (3)
  - BLADDER OBSTRUCTION [None]
  - DEHYDRATION [None]
  - RENAL FAILURE ACUTE [None]
